FAERS Safety Report 5181577-8 (Version None)
Quarter: 2006Q4

REPORT INFORMATION
  Report Type: 
  Country: None (occurrence: None)
  Receive Date: 20061220
  Receipt Date: 20060207
  Transmission Date: 20070319
  Serious: Yes (Other)
  Sender: FDA-Public Use
  Company Number: US-GLAXOSMITHKLINE-A0592575A

PATIENT
  Age: 40 Year
  Sex: Male

DRUGS (2)
  1. COMMIT [Suspect]
     Dosage: 4MG UNKNOWN
     Dates: start: 20050929, end: 20060201
  2. COMMIT [Suspect]
     Dosage: 4MG UNKNOWN
     Dates: start: 20060201

REACTIONS (3)
  - DRUG ABUSER [None]
  - DRY MOUTH [None]
  - TONGUE DISCOLOURATION [None]
